FAERS Safety Report 9413563 (Version 1)
Quarter: 2013Q3

REPORT INFORMATION
  Report Type: Spontaneous
  Country: FR (occurrence: None)
  Receive Date: 20130716
  Receipt Date: 20130716
  Transmission Date: 20140515
  Serious: Yes (Life-Threatening)
  Sender: FDA-Public Use
  Company Number: 222392

PATIENT
  Age: 77 Year
  Sex: Male

DRUGS (9)
  1. INNOHEP (TINZAPARIN SODIUM) [Suspect]
     Indication: PULMONARY EMBOLISM
     Route: 058
     Dates: start: 20130426, end: 20130511
  2. HYCAMTIN [Suspect]
     Indication: NEUROENDOCRINE CARCINOMA
     Dosage: 0.4143 MG (2.9 MG, 1 IN 1 WK)
     Dates: start: 20130430, end: 20130528
  3. INEXIUM (ESOMEPRAZOLE MAGNESIUM) [Concomitant]
  4. INEGY (INEGY) [Concomitant]
  5. DUROGESIC (FENTANYL) [Concomitant]
  6. ACTISKENAN (MORPHINE SULFATE) [Concomitant]
  7. SERETIDE (SERETIDE) [Concomitant]
  8. PLAVIX (CLOPIDOGREL) [Concomitant]
  9. PRAXILENE (NAFTIDROFURYL OXALATE) [Suspect]

REACTIONS (5)
  - Febrile bone marrow aplasia [None]
  - Blood pressure decreased [None]
  - Heparin-induced thrombocytopenia [None]
  - Thrombocytopenia [None]
  - Anaemia [None]
